FAERS Safety Report 8320085-X (Version None)
Quarter: 2012Q2

REPORT INFORMATION
  Report Type: 
  Country: None (occurrence: None)
  Receive Date: 20120429
  Receipt Date: 20120419
  Transmission Date: 20120825
  Serious: Yes (Other)
  Sender: FDA-Public Use
  Company Number: US-VERTEX PHARMACEUTICALS INC.-AE-2012-005672

PATIENT
  Sex: Male
  Weight: 59.02 kg

DRUGS (5)
  1. INCIVEK [Suspect]
     Indication: HEPATITIS C
     Route: 048
     Dates: start: 20120329
  2. RIBAVIRIN [Concomitant]
     Indication: HEPATITIS C
     Route: 048
     Dates: start: 20120329
  3. LISINOPRIL AND HYDROCHLOROTHIAZIDE [Concomitant]
  4. PEGASYS [Concomitant]
     Indication: HEPATITIS C
     Route: 058
     Dates: start: 20120329
  5. NORVASC [Concomitant]

REACTIONS (4)
  - DYSSTASIA [None]
  - DIZZINESS [None]
  - FEELING COLD [None]
  - HYPOTENSION [None]
